FAERS Safety Report 7905804-6 (Version None)
Quarter: 2011Q4

REPORT INFORMATION
  Report Type: 
  Country: None (occurrence: None)
  Receive Date: 20111110
  Receipt Date: 20111101
  Transmission Date: 20120403
  Serious: Yes (Death, Life-Threatening)
  Sender: FDA-Public Use
  Company Number: JP-JNJFOC-20111001225

PATIENT
  Sex: Male
  Weight: 87 kg

DRUGS (11)
  1. IMURAN [Concomitant]
     Route: 048
  2. LIPIDIL [Concomitant]
     Route: 048
  3. AMARYL [Concomitant]
     Route: 048
  4. RESTAMIN [Concomitant]
     Route: 065
  5. EPADEL [Concomitant]
     Route: 048
  6. PENTASA [Concomitant]
     Route: 048
  7. FAMOTIDINE [Concomitant]
     Route: 048
  8. BASEN [Concomitant]
     Route: 048
  9. REMICADE [Suspect]
     Indication: CROHN'S DISEASE
     Route: 042
     Dates: start: 20110831
  10. LAC-B [Concomitant]
     Route: 048
  11. YAKUBAN [Concomitant]
     Route: 065

REACTIONS (2)
  - NEPHRITIS [None]
  - PYONEPHROSIS [None]
